FAERS Safety Report 11906133 (Version 1)
Quarter: 2016Q1

REPORT INFORMATION
  Report Type: Spontaneous
  Country: US (occurrence: None)
  Receive Date: 20160108
  Receipt Date: 20160108
  Transmission Date: 20160526
  Serious: No
  Sender: FDA-Public Use
  Company Number: None

PATIENT
  Age: 58 Year
  Sex: Female
  Weight: 81.65 kg

DRUGS (3)
  1. INVEGA [Suspect]
     Active Substance: PALIPERIDONE
  2. PROLIXIN [Suspect]
     Active Substance: FLUPHENAZINE HYDROCHLORIDE
     Indication: DEPRESSION
     Dates: start: 201504
  3. PROLIXIN [Suspect]
     Active Substance: FLUPHENAZINE HYDROCHLORIDE
     Indication: PSYCHOTIC DISORDER
     Dates: start: 201504

REACTIONS (7)
  - Cyst [None]
  - Rash [None]
  - Dyspnoea [None]
  - Vaginal cyst [None]
  - Fatigue [None]
  - Skin discolouration [None]
  - Breast swelling [None]

NARRATIVE: CASE EVENT DATE: 20150408
